FAERS Safety Report 17209418 (Version 8)
Quarter: 2020Q3

REPORT INFORMATION
  Report Type: Spontaneous
  Country: DE (occurrence: DE)
  Receive Date: 20191227
  Receipt Date: 20200710
  Transmission Date: 20201102
  Serious: Yes (Hospitalization, Disabling, Other)
  Sender: FDA-Public Use
  Company Number: DE-MYLANLABS-2019M1127779

PATIENT
  Age: 64 Year
  Sex: Male
  Weight: 90 kg

DRUGS (22)
  1. VALSARTAN. [Suspect]
     Active Substance: VALSARTAN
     Indication: PRODUCT USED FOR UNKNOWN INDICATION
     Dosage: 160 MG, QD (IN MORNING)
     Route: 065
     Dates: start: 2012
  2. ONGLYZA [Concomitant]
     Active Substance: SAXAGLIPTIN HYDROCHLORIDE
     Indication: PRODUCT USED FOR UNKNOWN INDICATION
     Dosage: 5 MG, QD (EVENING),
     Route: 065
  3. VALSARTAN. [Suspect]
     Active Substance: VALSARTAN
     Dosage: 160 MG, QD (IN MORNING)
     Route: 065
     Dates: start: 20130409
  4. JANUVIA [Concomitant]
     Active Substance: SITAGLIPTIN PHOSPHATE
     Indication: PRODUCT USED FOR UNKNOWN INDICATION
     Dosage: 1 DOSAGE FORM 0.5 DF, BID (50/850
     Route: 065
     Dates: start: 20111110, end: 20111118
  5. VALSARTAN. [Suspect]
     Active Substance: VALSARTAN
     Dosage: 160 MG, BID (MORNING AND EVENING)
     Route: 065
  6. AMLODIPINE [Concomitant]
     Active Substance: AMLODIPINE BESYLATE
     Indication: PRODUCT USED FOR UNKNOWN INDICATION
     Dosage: 5 MILLIGRAM, QD
     Route: 065
  7. LEVOTHYROXINE. [Concomitant]
     Active Substance: LEVOTHYROXINE
     Dosage: 100 UG, QD (IN THE EVENING)
     Route: 065
  8. ONGLYZA [Concomitant]
     Active Substance: SAXAGLIPTIN HYDROCHLORIDE
     Dosage: 5 MG, QD (MORNING)
     Route: 065
  9. FORXIGA [Concomitant]
     Active Substance: DAPAGLIFLOZIN
     Dosage: 10 MG, BID (IN THE MORNING AND EVENING)
     Route: 065
  10. BOOSTRIX [Concomitant]
     Active Substance: TETANUS TOXOID, REDUCED DIPHTHERIA TOXOID AND ACELLULAR PERTUSSIS VACCINE, ADSORBED ANTIGENS
     Indication: PRODUCT USED FOR UNKNOWN INDICATION
     Dosage: UNK, ONCE/SINGLE
     Route: 065
     Dates: start: 20150710, end: 20150710
  11. VALSARTAN. [Suspect]
     Active Substance: VALSARTAN
     Dosage: 1 DF, QD (IN MORNING)
     Route: 065
     Dates: start: 20130409
  12. VALSARTAN. [Suspect]
     Active Substance: VALSARTAN
     Indication: PRODUCT USED FOR UNKNOWN INDICATION
     Dosage: 160 MILLIGRAM, QD
     Route: 065
  13. RANITIDINE. [Concomitant]
     Active Substance: RANITIDINE
     Indication: PRODUCT USED FOR UNKNOWN INDICATION
     Dosage: 150 MG, BID (IN THE MORNING AND IN THE EVENING)
     Route: 065
  14. AMLODIPINE [Concomitant]
     Active Substance: AMLODIPINE BESYLATE
     Dosage: 5 MILLIGRAM, QD
     Route: 065
     Dates: start: 20111109
  15. INEGY [Concomitant]
     Active Substance: EZETIMIBE\SIMVASTATIN
     Indication: PRODUCT USED FOR UNKNOWN INDICATION
     Dosage: 1 DOSAGE FORM, QD (10/20)
     Route: 065
  16. VALSARTAN. [Suspect]
     Active Substance: VALSARTAN
     Dosage: 1.5 DF, QD (1 IN MORNING AND HALF IN EVENING)
     Route: 065
  17. SIMVASTATIN. [Concomitant]
     Active Substance: SIMVASTATIN
     Indication: PRODUCT USED FOR UNKNOWN INDICATION
     Dosage: 40 MILLIGRAM, QD (EVENING)
     Route: 065
     Dates: end: 20080421
  18. MOXONIDINE [Concomitant]
     Active Substance: MOXONIDINE
     Indication: PRODUCT USED FOR UNKNOWN INDICATION
     Dosage: 0.3 MILLIGRAM, QD
     Route: 065
  19. FORXIGA [Concomitant]
     Active Substance: DAPAGLIFLOZIN
     Indication: PRODUCT USED FOR UNKNOWN INDICATION
     Dosage: 10 MG, QD (IN THE EVENING)
     Route: 065
  20. LEVOTHYROXINE. [Concomitant]
     Active Substance: LEVOTHYROXINE
     Indication: PRODUCT USED FOR UNKNOWN INDICATION
     Dosage: 100 MILLIGRAM, QD (EVENING)
     Route: 065
  21. SILDENAFIL. [Concomitant]
     Active Substance: SILDENAFIL
     Indication: PRODUCT USED FOR UNKNOWN INDICATION
     Dosage: 25 MILLIGRAM, QD (? OF 100 MG)
  22. JANUVIA [Concomitant]
     Active Substance: SITAGLIPTIN PHOSPHATE
     Dosage: 2 DOSAGE FORM 1 DF, BID
     Route: 065
     Dates: start: 20111118

REACTIONS (41)
  - Prostate cancer [Recovered/Resolved with Sequelae]
  - Arthralgia [Unknown]
  - Prostatic specific antigen increased [Unknown]
  - Erythema [Unknown]
  - Haemorrhoids [Unknown]
  - Anxiety [Recovering/Resolving]
  - Osteochondrosis [Unknown]
  - Irritable bowel syndrome [Unknown]
  - Lymphadenopathy [Recovered/Resolved]
  - Lumbar radiculopathy [Unknown]
  - Hypoxia [Unknown]
  - Urogenital disorder [Unknown]
  - Pain [Unknown]
  - Osteoarthritis [Unknown]
  - Post procedural complication [Recovered/Resolved]
  - Skin irritation [Unknown]
  - Hyperlipidaemia [Unknown]
  - Erectile dysfunction [Unknown]
  - Intervertebral disc degeneration [Unknown]
  - Polyuria [Unknown]
  - Back pain [Unknown]
  - Lung diffusion disorder [Unknown]
  - Prostatomegaly [Recovered/Resolved with Sequelae]
  - Wound complication [Recovered/Resolved]
  - Post procedural erythema [Unknown]
  - Gamma-glutamyltransferase increased [Unknown]
  - Atrophy [Recovered/Resolved]
  - Lymphocele [Recovered/Resolved]
  - Flatulence [Unknown]
  - Prostate examination abnormal [Unknown]
  - Blood pressure increased [Unknown]
  - Abdominal discomfort [Unknown]
  - Renal cyst [Unknown]
  - Bowel movement irregularity [Unknown]
  - Prostate cancer recurrent [Unknown]
  - Gastritis bacterial [Unknown]
  - Respiratory failure [Unknown]
  - Gastrointestinal disorder [Unknown]
  - Abnormal faeces [Unknown]
  - Phlebolith [Unknown]
  - Hernia [Unknown]

NARRATIVE: CASE EVENT DATE: 2017
